FAERS Safety Report 6016700-6 (Version None)
Quarter: 2008Q4

REPORT INFORMATION
  Report Type: 
  Country: None (occurrence: None)
  Receive Date: 20081218
  Receipt Date: 20081203
  Transmission Date: 20090506
  Serious: Yes (Other)
  Sender: FDA-Public Use
  Company Number: DSU-2008-02136

PATIENT
  Age: 74 Year
  Sex: Male
  Weight: 70.8 kg

DRUGS (9)
  1. OLMESARTAN MEDOXOMIL [Suspect]
     Indication: TYPE 2 DIABETES MELLITUS
     Dosage: 10/40 MG QD, PER ORAL
     Route: 048
     Dates: start: 20081021, end: 20081130
  2. HYDROCHLOROTHIAZIDE [Suspect]
     Indication: HYPERTENSION
     Dosage: 25 MG (25 MG QD), PER ORAL
     Route: 048
     Dates: start: 20081110, end: 20081126
  3. FLOMAX (TAMSULOSIN HYDROCHLORIDE) (TAMSULOSIN HYDROCHLORIDE) [Concomitant]
  4. MELOXICAM [Concomitant]
  5. METFORMIN HCL [Concomitant]
  6. ACTOS [Concomitant]
  7. GLIPIZIDE [Concomitant]
  8. LOVASTATIN (LOVASTATIN) (LOVASTATIN) [Concomitant]
  9. GABAPENTIN (GABAPENTIN) (GABAPENTIN) [Concomitant]

REACTIONS (3)
  - FALL [None]
  - HYPOTENSION [None]
  - PRESYNCOPE [None]
